FAERS Safety Report 6850596-5 (Version None)
Quarter: 2010Q3

REPORT INFORMATION
  Report Type: 
  Country: None (occurrence: None)
  Receive Date: 20100716
  Receipt Date: 20071018
  Transmission Date: 20110219
  Serious: Yes (Hospitalization, Other)
  Sender: FDA-Public Use
  Company Number: US-PFIZER INC-2007088271

PATIENT
  Sex: Male
  Weight: 75.3 kg

DRUGS (1)
  1. CHANTIX [Suspect]
     Indication: SMOKING CESSATION THERAPY
     Dates: start: 20070918, end: 20070926

REACTIONS (4)
  - DIZZINESS [None]
  - HYPOTENSION [None]
  - LIMB INJURY [None]
  - LOSS OF CONSCIOUSNESS [None]
